FAERS Safety Report 18624119 (Version 2)
Quarter: 2023Q1

REPORT INFORMATION
  Report Type: Spontaneous
  Country: US (occurrence: US)
  Receive Date: 20201216
  Receipt Date: 20230310
  Transmission Date: 20230418
  Serious: No
  Sender: FDA-Public Use
  Company Number: US-PFIZER INC-2020494059

PATIENT
  Age: 69 Year
  Sex: Female

DRUGS (5)
  1. BACITRACIN [Suspect]
     Active Substance: BACITRACIN
     Dosage: UNK
  2. NEOMYCIN SULFATE [Suspect]
     Active Substance: NEOMYCIN SULFATE
     Dosage: UNK
  3. BENZYL ALCOHOL [Suspect]
     Active Substance: BENZYL ALCOHOL
     Dosage: UNK
  4. PROPOLIS WAX [Suspect]
     Active Substance: PROPOLIS WAX
     Dosage: UNK
  5. HYDROQUINONE [Suspect]
     Active Substance: HYDROQUINONE
     Dosage: UNK

REACTIONS (1)
  - Drug hypersensitivity [Unknown]
